FAERS Safety Report 7072336-X (Version None)
Quarter: 2010Q4

REPORT INFORMATION
  Report Type: 
  Country: None (occurrence: None)
  Receive Date: 20101029
  Receipt Date: 20100113
  Transmission Date: 20110411
  Serious: No
  Sender: FDA-Public Use
  Company Number: A0839217A

PATIENT
  Age: 79 Year
  Sex: Female

DRUGS (13)
  1. ADVAIR DISKUS 100/50 [Suspect]
     Indication: CHRONIC OBSTRUCTIVE PULMONARY DISEASE
     Dosage: 1PUFF TWICE PER DAY
     Route: 055
     Dates: start: 20090101, end: 20091001
  2. SPIRIVA [Concomitant]
  3. METOPROLOL [Concomitant]
  4. ASPIRIN [Concomitant]
  5. CENTRUM SILVER [Concomitant]
  6. CITRACAL + D [Concomitant]
  7. LIPITOR [Concomitant]
  8. AMLODIPINE [Concomitant]
  9. LOVAZA [Concomitant]
  10. VITAMIN B-12 [Concomitant]
  11. VITAMIN D [Concomitant]
  12. CRANBERRY [Concomitant]
  13. ALENDRONATE SODIUM [Concomitant]

REACTIONS (2)
  - DYSPHAGIA [None]
  - PHARYNGEAL DISORDER [None]
